FAERS Safety Report 5731547-3 (Version None)
Quarter: 2008Q2

REPORT INFORMATION
  Report Type: 
  Country: None (occurrence: None)
  Receive Date: 20080506
  Receipt Date: 20080424
  Transmission Date: 20081010
  Serious: Yes (Other)
  Sender: FDA-Public Use
  Company Number: 2008040046

PATIENT
  Age: 29 Year
  Sex: Female

DRUGS (4)
  1. ASTELIN [Suspect]
     Indication: EAR DISORDER
     Dosage: (274 MCG,ONCE) IN
     Dates: start: 20080422, end: 20080422
  2. ESTRADIOL [Concomitant]
  3. SERTRALINE [Concomitant]
  4. SPIRONOLACTONE [Concomitant]

REACTIONS (10)
  - ABDOMINAL PAIN [None]
  - CONVULSION [None]
  - DIZZINESS [None]
  - DYSPNOEA [None]
  - HYPERTENSION [None]
  - LOSS OF CONSCIOUSNESS [None]
  - MUSCLE SPASMS [None]
  - MYDRIASIS [None]
  - UNRESPONSIVE TO STIMULI [None]
  - VOMITING [None]
